FAERS Safety Report 23190422 (Version 1)
Quarter: 2023Q4

REPORT INFORMATION
  Report Type: Spontaneous
  Country: US (occurrence: US)
  Receive Date: 20231116
  Receipt Date: 20231116
  Transmission Date: 20240109
  Serious: No
  Sender: FDA-Public Use
  Company Number: US-BEH-2022142204

PATIENT
  Age: 53 Year
  Sex: Female

DRUGS (1)
  1. HIZENTRA [Suspect]
     Active Substance: HUMAN IMMUNOGLOBULIN G
     Indication: Primary immunodeficiency syndrome
     Dosage: UNK
     Route: 058
     Dates: start: 20210401

REACTIONS (11)
  - Herpes zoster [Unknown]
  - Blood creatinine increased [Unknown]
  - Blood creatine phosphokinase increased [Unknown]
  - Muscle disorder [Unknown]
  - Frustration tolerance decreased [Unknown]
  - Fear [Unknown]
  - Myalgia [Not Recovered/Not Resolved]
  - Anxiety [Not Recovered/Not Resolved]
  - Muscle fatigue [Not Recovered/Not Resolved]
  - Muscle atrophy [Not Recovered/Not Resolved]
  - Myositis [Not Recovered/Not Resolved]
